FAERS Safety Report 10100922 (Version 1)
Quarter: 2014Q2

REPORT INFORMATION
  Report Type: Spontaneous
  Country: US (occurrence: US)
  Receive Date: 20140423
  Receipt Date: 20140423
  Transmission Date: 20141212
  Serious: Yes (Other)
  Sender: FDA-Public Use
  Company Number: US-ABBVIE-14P-163-1225675-00

PATIENT
  Age: 43 Year
  Sex: Female
  Weight: 65.83 kg

DRUGS (4)
  1. HUMIRA [Suspect]
     Indication: CROHN^S DISEASE
     Route: 058
     Dates: start: 201211, end: 201403
  2. HUMIRA [Suspect]
     Indication: FISTULA
     Route: 058
     Dates: start: 20140317
  3. SYNTHROID [Concomitant]
     Indication: HYPOTHYROIDISM
  4. 6-MP [Concomitant]
     Indication: CROHN^S DISEASE

REACTIONS (15)
  - Swelling face [Recovered/Resolved]
  - Hypoaesthesia [Recovered/Resolved]
  - Epistaxis [Recovered/Resolved]
  - Tinea faciei [Recovering/Resolving]
  - External ear inflammation [Recovering/Resolving]
  - Skin disorder [Recovering/Resolving]
  - Dermatitis psoriasiform [Recovering/Resolving]
  - Impetigo [Recovering/Resolving]
  - Photosensitivity reaction [Recovering/Resolving]
  - Drug level increased [Unknown]
  - Nasal discomfort [Recovering/Resolving]
  - Skin disorder [Recovering/Resolving]
  - Rash [Recovering/Resolving]
  - Scab [Recovering/Resolving]
  - Wound secretion [Recovering/Resolving]
